FAERS Safety Report 13302367 (Version 2)
Quarter: 2017Q2

REPORT INFORMATION
  Report Type: Spontaneous
  Country: ES (occurrence: ES)
  Receive Date: 20170307
  Receipt Date: 20170530
  Transmission Date: 20170830
  Serious: Yes (Life-Threatening, Hospitalization, Other)
  Sender: FDA-Public Use
  Company Number: PHHY2017ES033591

PATIENT
  Age: 55 Year
  Sex: Male

DRUGS (1)
  1. TASIGNA [Suspect]
     Active Substance: NILOTINIB
     Indication: CHRONIC MYELOID LEUKAEMIA
     Route: 065

REACTIONS (9)
  - Angina pectoris [Unknown]
  - Hyperhidrosis [Unknown]
  - Troponin increased [Unknown]
  - Infarction [Recovered/Resolved]
  - Coronary artery dilatation [Unknown]
  - Nausea [Unknown]
  - Dyspnoea [Unknown]
  - Chest discomfort [Unknown]
  - Vomiting [Unknown]

NARRATIVE: CASE EVENT DATE: 20170122
